FAERS Safety Report 9550857 (Version 1)
Quarter: 2013Q3

REPORT INFORMATION
  Report Type: Spontaneous
  Country: US (occurrence: US)
  Receive Date: 20130924
  Receipt Date: 20130924
  Transmission Date: 20140515
  Serious: No
  Sender: FDA-Public Use
  Company Number: US-SANOFI-AVENTIS-2013SA039822

PATIENT
  Age: 35 Year
  Sex: Female

DRUGS (10)
  1. AUBAGIO [Suspect]
     Indication: MULTIPLE SCLEROSIS
     Route: 048
     Dates: start: 201303
  2. AUBAGIO [Suspect]
     Indication: MULTIPLE SCLEROSIS
     Route: 048
     Dates: start: 201303
  3. EFFEXOR [Concomitant]
  4. NORTRIPTYLINE [Concomitant]
  5. HYDROCODONE W/ACETAMINOPHEN [Concomitant]
  6. DIAZEPAM [Concomitant]
  7. BACLOFEN [Concomitant]
  8. POLYETHYLENE GLYCOL [Concomitant]
  9. DOCUSATE SODIUM [Concomitant]
  10. CLARITIN [Concomitant]

REACTIONS (3)
  - Headache [Unknown]
  - Alopecia [Unknown]
  - Drug dose omission [Unknown]
